FAERS Safety Report 10034192 (Version 1)
Quarter: 2014Q1

REPORT INFORMATION
  Report Type: Spontaneous
  Country: US (occurrence: None)
  Receive Date: 20140324
  Receipt Date: 20140324
  Transmission Date: 20141002
  Serious: Yes (Other)
  Sender: FDA-Public Use
  Company Number: None

PATIENT
  Age: 37 Year
  Sex: Female
  Weight: 48.08 kg

DRUGS (2)
  1. PAXIL [Suspect]
     Indication: ANXIETY
     Dosage: 1 PILL  AT BEDTIME  TAKEN BY MOUTH?DURATION:  ONCE?
     Route: 048
  2. PAXIL [Suspect]
     Indication: DEPRESSION
     Dosage: 1 PILL  AT BEDTIME  TAKEN BY MOUTH?DURATION:  ONCE?
     Route: 048

REACTIONS (1)
  - Movement disorder [None]
